FAERS Safety Report 6519729-4 (Version None)
Quarter: 2009Q4

REPORT INFORMATION
  Report Type: 
  Country: None (occurrence: None)
  Receive Date: 20091228
  Receipt Date: 20091228
  Transmission Date: 20100525
  Serious: Yes (Other)
  Sender: FDA-Public Use
  Company Number: None

PATIENT
  Age: 57 Year
  Sex: Male
  Weight: 77.1115 kg

DRUGS (2)
  1. CIPROFLAXIN 500 MG PER TAB [Suspect]
     Indication: POUCHITIS
     Dosage: 100 MG TWO 500 PILLS DAIL PO FOLLOWED BY 500 MG DAILY PO
     Route: 048
     Dates: start: 20091011, end: 20091204
  2. CIPROFLAXIN 500 MG PER TAB [Suspect]
     Indication: POUCHITIS
     Dosage: 100 MG TWO 500 PILLS DAIL PO FOLLOWED BY 500 MG DAILY PO
     Route: 048
     Dates: start: 20091215, end: 20091221

REACTIONS (3)
  - MUSCULAR WEAKNESS [None]
  - PARAESTHESIA [None]
  - TENDON PAIN [None]
